FAERS Safety Report 9290658 (Version 2)
Quarter: 2013Q2

REPORT INFORMATION
  Report Type: Report from Study
  Country: CA (occurrence: CA)
  Receive Date: 20130515
  Receipt Date: 20130516
  Transmission Date: 20140414
  Serious: Yes (Other)
  Sender: FDA-Public Use
  Company Number: CA-ROCHE-1224483

PATIENT
  Age: 70 Year
  Sex: Male
  Weight: 66.7 kg

DRUGS (8)
  1. XELODA [Suspect]
     Indication: COLON CANCER METASTATIC
     Route: 048
     Dates: start: 201102
  2. XELODA [Suspect]
     Route: 065
     Dates: start: 20130419, end: 20130508
  3. XELODA [Suspect]
     Route: 065
  4. AMILORIDE [Concomitant]
  5. GLICLAZIDE [Concomitant]
  6. ROSUVASTATIN [Concomitant]
  7. GEMCITABINE [Concomitant]
  8. CARBOPLATIN [Concomitant]

REACTIONS (2)
  - Hepatic neoplasm [Not Recovered/Not Resolved]
  - Pyrexia [Unknown]
